FAERS Safety Report 23672255 (Version 1)
Quarter: 2024Q1

REPORT INFORMATION
  Report Type: Other
  Country: CA (occurrence: CA)
  Receive Date: 20240326
  Receipt Date: 20240326
  Transmission Date: 20240409
  Serious: Yes (Life-Threatening)
  Sender: FDA-Public Use
  Company Number: CA-APOTEX-2024AP003781

PATIENT
  Sex: Male

DRUGS (3)
  1. EZETIMIBE [Suspect]
     Active Substance: EZETIMIBE
     Indication: Arteriosclerosis
     Dosage: 10 MILLIGRAM, QD
     Route: 065
  2. PRAVASTATIN [Suspect]
     Active Substance: PRAVASTATIN
     Indication: Arteriosclerosis
     Dosage: 10 MILLIGRAM, QD
     Route: 065
  3. LEQVIO [Suspect]
     Active Substance: INCLISIRAN SODIUM
     Indication: Arteriosclerosis
     Dosage: UNK
     Route: 058

REACTIONS (6)
  - Drug intolerance [Unknown]
  - Dyspnoea [Unknown]
  - Feeling abnormal [Unknown]
  - Low density lipoprotein increased [Unknown]
  - Malaise [Unknown]
  - Drug ineffective [Unknown]
